FAERS Safety Report 9222511 (Version 1)
Quarter: 2013Q2

REPORT INFORMATION
  Report Type: Spontaneous
  Country: US (occurrence: US)
  Receive Date: 20130410
  Receipt Date: 20130410
  Transmission Date: 20140414
  Serious: No
  Sender: FDA-Public Use
  Company Number: US-BAYER-2013-044964

PATIENT
  Age: 73 Year
  Sex: Male
  Weight: 88.44 kg

DRUGS (3)
  1. ALEVE TABLET [Suspect]
     Indication: ARTHRITIS
     Dosage: 1 DF, PRN
     Route: 048
     Dates: start: 201303, end: 20130330
  2. BLOOD PRESSURE MEDICATION (NOS) [Concomitant]
  3. METFORMIN [Concomitant]

REACTIONS (1)
  - Blood glucose increased [Recovered/Resolved]
